FAERS Safety Report 8396146-6 (Version None)
Quarter: 2012Q2

REPORT INFORMATION
  Report Type: 
  Country: None (occurrence: None)
  Receive Date: 20120530
  Receipt Date: 20120522
  Transmission Date: 20120825
  Serious: Yes (Hospitalization, Congenital Anomaly)
  Sender: FDA-Public Use
  Company Number: US-GLAXOSMITHKLINE-A0979132A

PATIENT
  Sex: Female

DRUGS (2)
  1. PAROXETINE HCL [Suspect]
     Indication: PANIC DISORDER
     Route: 064
     Dates: start: 20030101
  2. PAXIL [Suspect]
     Indication: PANIC DISORDER
     Route: 064
     Dates: end: 20030101

REACTIONS (2)
  - FOETAL EXPOSURE DURING PREGNANCY [None]
  - BICUSPID AORTIC VALVE [None]
